FAERS Safety Report 6657075-9 (Version None)
Quarter: 2010Q1

REPORT INFORMATION
  Report Type: 
  Country: None (occurrence: None)
  Receive Date: 20100330
  Receipt Date: 20100317
  Transmission Date: 20100710
  Serious: Yes (Hospitalization)
  Sender: FDA-Public Use
  Company Number: US-CELGENEUS-163-20785-10031712

PATIENT
  Sex: Male

DRUGS (1)
  1. THALOMID [Suspect]
     Indication: MULTIPLE MYELOMA
     Route: 048
     Dates: start: 20090204

REACTIONS (5)
  - BLOOD COUNT ABNORMAL [None]
  - DIARRHOEA [None]
  - KIDNEY INFECTION [None]
  - PANCYTOPENIA [None]
  - URINARY TRACT INFECTION [None]
